FAERS Safety Report 16878344 (Version 6)
Quarter: 2020Q1

REPORT INFORMATION
  Report Type: Report from Study
  Country: JP (occurrence: JP)
  Receive Date: 20191002
  Receipt Date: 20200226
  Transmission Date: 20200409
  Serious: Yes (Other)
  Sender: FDA-Public Use
  Company Number: PHJP2019JP012734

PATIENT
  Age: 6 Year
  Sex: Female
  Weight: 27.8 kg

DRUGS (31)
  1. ILARIS [Suspect]
     Active Substance: CANAKINUMAB
     Dosage: 111 MG, UNK
     Route: 058
     Dates: start: 20181009
  2. MEDROL [Concomitant]
     Active Substance: METHYLPREDNISOLONE
     Dosage: 1.5 MG, UNK
     Route: 048
     Dates: start: 20190704, end: 20190910
  3. ILARIS [Suspect]
     Active Substance: CANAKINUMAB
     Dosage: 108 MG, UNK
     Route: 058
     Dates: start: 20181228
  4. ILARIS [Suspect]
     Active Substance: CANAKINUMAB
     Dosage: 99 MG, UNK
     Route: 058
     Dates: start: 20190415
  5. ILARIS [Suspect]
     Active Substance: CANAKINUMAB
     Dosage: 111 MG, UNK
     Route: 058
     Dates: start: 20180912
  6. ILARIS [Suspect]
     Active Substance: CANAKINUMAB
     Dosage: 111 MG, UNK
     Route: 058
     Dates: start: 20181105
  7. MEDROL [Concomitant]
     Active Substance: METHYLPREDNISOLONE
     Indication: STILL^S DISEASE
     Dosage: 16 MG, UNK
     Route: 048
     Dates: start: 20180704, end: 20180817
  8. MEDROL [Concomitant]
     Active Substance: METHYLPREDNISOLONE
     Dosage: 7 MG, UNK
     Route: 048
     Dates: start: 20181106, end: 20181203
  9. MEDROL [Concomitant]
     Active Substance: METHYLPREDNISOLONE
     Dosage: 2 MG, UNK
     Route: 048
     Dates: start: 20190511, end: 20190703
  10. ILARIS [Suspect]
     Active Substance: CANAKINUMAB
     Dosage: 108 MG, UNK
     Route: 058
     Dates: start: 20180817
  11. ILARIS [Suspect]
     Active Substance: CANAKINUMAB
     Dosage: 108 MG, UNK
     Route: 058
     Dates: start: 20181203
  12. ILARIS [Suspect]
     Active Substance: CANAKINUMAB
     Dosage: 99 MG, UNK
     Route: 058
     Dates: start: 20190318
  13. ILARIS [Suspect]
     Active Substance: CANAKINUMAB
     Dosage: 99 MG, UNK
     Route: 058
     Dates: start: 20190510
  14. ILARIS [Suspect]
     Active Substance: CANAKINUMAB
     Dosage: 105 MG, UNK
     Route: 058
     Dates: start: 20190606
  15. MEDROL [Concomitant]
     Active Substance: METHYLPREDNISOLONE
     Indication: HAEMOPHAGOCYTIC LYMPHOHISTIOCYTOSIS
     Dosage: 12 MG, UNK
     Route: 048
     Dates: start: 20180818, end: 20180912
  16. MEDROL [Concomitant]
     Active Substance: METHYLPREDNISOLONE
     Dosage: 4 MG, UNK
     Route: 048
     Dates: start: 20190124, end: 20190218
  17. MEDROL [Concomitant]
     Active Substance: METHYLPREDNISOLONE
     Dosage: 1 MG, UNK
     Route: 048
     Dates: start: 20190911
  18. ILARIS [Suspect]
     Active Substance: CANAKINUMAB
     Dosage: 108 MG, UNK
     Route: 058
     Dates: start: 20190123
  19. CICLOSPORIN [Concomitant]
     Active Substance: CYCLOSPORINE
     Indication: STILL^S DISEASE
     Dosage: 120 MG, UNK
     Route: 048
     Dates: start: 20180415, end: 20180817
  20. CICLOSPORIN [Concomitant]
     Active Substance: CYCLOSPORINE
     Indication: HAEMOPHAGOCYTIC LYMPHOHISTIOCYTOSIS
     Dosage: 100 MG, UNK
     Route: 048
     Dates: start: 20180818
  21. MEDROL [Concomitant]
     Active Substance: METHYLPREDNISOLONE
     Dosage: 10 MG, UNK
     Route: 048
     Dates: start: 20180913, end: 20181009
  22. MEDROL [Concomitant]
     Active Substance: METHYLPREDNISOLONE
     Dosage: 8 MG, UNK
     Route: 048
     Dates: start: 20181010, end: 20181105
  23. MEDROL [Concomitant]
     Active Substance: METHYLPREDNISOLONE
     Dosage: 3 MG, UNK
     Route: 048
     Dates: start: 20190219, end: 20190318
  24. ILARIS [Suspect]
     Active Substance: CANAKINUMAB
     Indication: STILL^S DISEASE
     Dosage: 111 MG, UNK
     Route: 058
     Dates: start: 20180724
  25. ILARIS [Suspect]
     Active Substance: CANAKINUMAB
     Dosage: 105 MG, UNK
     Route: 058
     Dates: start: 20190218
  26. ILARIS [Suspect]
     Active Substance: CANAKINUMAB
     Dosage: 90 MG, UNK
     Route: 058
     Dates: start: 20190703
  27. ILARIS [Suspect]
     Active Substance: CANAKINUMAB
     Dosage: 90 MG, UNK
     Route: 058
     Dates: start: 20190813
  28. ILARIS [Suspect]
     Active Substance: CANAKINUMAB
     Dosage: 90 MG, UNK
     Route: 058
     Dates: start: 20190910, end: 20190910
  29. MEDROL [Concomitant]
     Active Substance: METHYLPREDNISOLONE
     Dosage: 6 MG, UNK
     Route: 048
     Dates: start: 20181204, end: 20181228
  30. MEDROL [Concomitant]
     Active Substance: METHYLPREDNISOLONE
     Dosage: 5 MG, UNK
     Route: 048
     Dates: start: 20181229, end: 20190123
  31. MEDROL [Concomitant]
     Active Substance: METHYLPREDNISOLONE
     Dosage: 2.5 MG, UNK
     Route: 048
     Dates: start: 20190319, end: 20190510

REACTIONS (15)
  - Myalgia [Recovered/Resolved]
  - Cough [Unknown]
  - Hyperthermia [Recovering/Resolving]
  - Nasopharyngitis [Recovering/Resolving]
  - Upper respiratory tract inflammation [Recovered/Resolved]
  - Haemoptysis [Recovered/Resolved]
  - Oral discomfort [Recovered/Resolved]
  - Weight decreased [Unknown]
  - Myalgia [Recovered/Resolved]
  - Abdominal pain [Recovered/Resolved]
  - Blood triglycerides increased [Unknown]
  - Viral infection [Unknown]
  - Constipation [Recovered/Resolved]
  - Pneumonia mycoplasmal [Recovered/Resolved]
  - Upper respiratory tract inflammation [Recovered/Resolved]

NARRATIVE: CASE EVENT DATE: 20180731
